FAERS Safety Report 6400962-7 (Version None)
Quarter: 2009Q4

REPORT INFORMATION
  Report Type: 
  Country: None (occurrence: None)
  Receive Date: 20091015
  Receipt Date: 20070817
  Transmission Date: 20100525
  Serious: Yes (Disabling)
  Sender: FDA-Public Use
  Company Number: US-ASTRAZENECA-2006UW10721

PATIENT
  Sex: Female
  Weight: 107 kg

DRUGS (13)
  1. SEROQUEL [Suspect]
     Dosage: 300 - 450 MG DAILY
     Route: 048
     Dates: start: 20011011
  2. CELEXA [Concomitant]
     Dosage: 20 - 60 MG DAILY
     Dates: start: 20011011
  3. NEURONTIN [Concomitant]
     Dates: start: 20000601
  4. LIPITOR [Concomitant]
     Dates: start: 20000601
  5. ASPIRIN [Concomitant]
     Dates: start: 20070329
  6. METFORMIN HYDROCHLORIDE [Concomitant]
     Dosage: 1000 - 1500 MG DAILY
     Dates: start: 20070308
  7. ATIVAN [Concomitant]
     Dates: start: 20011011
  8. BACLOFEN [Concomitant]
     Dosage: 4 - 30 MG DAILY
     Dates: start: 20070308
  9. HYDROCHLOROTHIAZIDE [Concomitant]
     Dates: start: 20070308
  10. ADVIL [Concomitant]
     Dates: start: 20070308
  11. ZETIA [Concomitant]
     Dates: start: 20070308
  12. PRILOSEC [Concomitant]
     Dates: start: 20070308
  13. ATROVENT [Concomitant]
     Dates: start: 20070308

REACTIONS (1)
  - ILL-DEFINED DISORDER [None]
